FAERS Safety Report 5264989-3 (Version None)
Quarter: 2007Q1

REPORT INFORMATION
  Report Type: 
  Country: None (occurrence: None)
  Receive Date: 20070314
  Receipt Date: 20070305
  Transmission Date: 20070707
  Serious: Yes (Hospitalization)
  Sender: FDA-Public Use
  Company Number: GR-ROCHE-485985

PATIENT
  Age: 70 Year
  Sex: Female
  Weight: 54 kg

DRUGS (4)
  1. BONVIVA [Suspect]
     Indication: OSTEOPOROSIS
     Dosage: FORM REPORTED AS F.C. (FILM COATED) TABLETS.
     Route: 048
     Dates: start: 20061111
  2. PLAQUENIL [Concomitant]
     Route: 048
  3. IDEOS [Concomitant]
     Route: 048
  4. ALFACALCIDOL [Concomitant]
     Route: 048

REACTIONS (1)
  - ERYTHEMA MULTIFORME [None]
